FAERS Safety Report 19508253 (Version 1)
Quarter: 2021Q3

REPORT INFORMATION
  Report Type: Spontaneous
  Country: IN (occurrence: IN)
  Receive Date: 20210708
  Receipt Date: 20210708
  Transmission Date: 20211014
  Serious: Yes (Other)
  Sender: FDA-Public Use
  Company Number: IN-MYLANLABS-2021M1039829

PATIENT
  Age: 34 Year
  Sex: Male

DRUGS (2)
  1. ADALIMUMAB [Suspect]
     Active Substance: ADALIMUMAB
     Indication: ANKYLOSING SPONDYLITIS
     Dosage: 40 MILLIGRAM ADALIMUMAB INJECTION 40MG, EVERY 15 DAYS
     Route: 065
  2. METHOTREXATE. [Suspect]
     Active Substance: METHOTREXATE
     Indication: ANKYLOSING SPONDYLITIS
     Dosage: SYSTEMIC
     Route: 065

REACTIONS (6)
  - Retinal haemorrhage [Recovering/Resolving]
  - Retinal vasculitis [Recovering/Resolving]
  - Disease recurrence [Recovering/Resolving]
  - Tuberculosis of eye [Recovered/Resolved]
  - Infective uveitis [Recovered/Resolved]
  - Uveitis [Recovering/Resolving]
